FAERS Safety Report 9661367 (Version 1)
Quarter: 2013Q4

REPORT INFORMATION
  Report Type: Spontaneous
  Country: US (occurrence: None)
  Receive Date: 20131030
  Receipt Date: 20131030
  Transmission Date: 20140711
  Serious: Yes (Life-Threatening, Hospitalization)
  Sender: FDA-Public Use
  Company Number: 2280705-2013-00065

PATIENT
  Age: 8 Month
  Sex: Male
  Weight: 7.6 kg

DRUGS (7)
  1. ORAJEL [Suspect]
     Indication: TEETHING
     Dosage: 15-20 TIMES, ORAL?CONTINUES 08/06/2012
     Route: 048
     Dates: end: 20120804
  2. ACETAMINOPHEN [Concomitant]
  3. LIDOCAINE TOPICAL [Concomitant]
  4. MORPHINE [Concomitant]
  5. DIPHENHYDRAMINE [Concomitant]
  6. MEDLINE SOLUTION [Concomitant]
  7. SODIUM CHLORIDE [Concomitant]

REACTIONS (2)
  - Methaemoglobinaemia [None]
  - Oxygen saturation decreased [None]
